FAERS Safety Report 4413669-2 (Version None)
Quarter: 2004Q2

REPORT INFORMATION
  Report Type: 
  Country: None (occurrence: None)
  Receive Date: 20040630
  Receipt Date: 20040428
  Transmission Date: 20050107
  Serious: No
  Sender: FDA-Public Use
  Company Number: 04P-163-0259031-00

PATIENT
  Age: 69 Year
  Sex: Female
  Weight: 63.5036 kg

DRUGS (8)
  1. HUMIRA [Suspect]
     Indication: RHEUMATOID ARTHRITIS
     Dosage: 40 MG, 1 IN 2 WK, SUBCUTANEOUS
     Route: 058
     Dates: start: 20030101
  2. ATORVASTATIN CALCIUM [Concomitant]
  3. TOLTERODINE TARTRATE [Concomitant]
  4. ATENOLOL [Concomitant]
  5. DOXEPIN HCL [Concomitant]
  6. ACETAMINOPHEN [Concomitant]
  7. MULTIVITAMIN [Concomitant]
  8. CALCIUM [Concomitant]

REACTIONS (1)
  - RHEUMATOID ARTHRITIS [None]
